FAERS Safety Report 9058611 (Version 1)
Quarter: 2013Q1

REPORT INFORMATION
  Report Type: Spontaneous
  Country: FR (occurrence: FR)
  Receive Date: 20130211
  Receipt Date: 20130211
  Transmission Date: 20140127
  Serious: Yes (Hospitalization)
  Sender: FDA-Public Use
  Company Number: PHHY2013FR011103

PATIENT
  Age: 47 Year
  Sex: Female

DRUGS (5)
  1. PROPOFOL [Suspect]
     Indication: GENERAL ANAESTHESIA
  2. SUFENTANIL [Suspect]
     Indication: GENERAL ANAESTHESIA
     Route: 042
  3. CISATRACURIUM BESYLATE [Suspect]
     Indication: GENERAL ANAESTHESIA
  4. NITROUS OXIDE [Concomitant]
  5. SEVOFLURANE [Concomitant]

REACTIONS (2)
  - Peripheral nerve palsy [Not Recovered/Not Resolved]
  - VIIth nerve paralysis [Not Recovered/Not Resolved]
